FAERS Safety Report 12209231 (Version 6)
Quarter: 2016Q4

REPORT INFORMATION
  Report Type: Report from Study
  Country: JP (occurrence: JP)
  Receive Date: 20160324
  Receipt Date: 20161019
  Transmission Date: 20170207
  Serious: Yes (Other)
  Sender: FDA-Public Use
  Company Number: PHJP2016JP004621

PATIENT
  Age: 41 Year
  Sex: Female
  Weight: 68.6 kg

DRUGS (19)
  1. ZYPREXA [Concomitant]
     Active Substance: OLANZAPINE
     Indication: EPILEPSY
     Dosage: UNK
     Route: 065
  2. ROZEREM [Concomitant]
     Active Substance: RAMELTEON
     Indication: PRODUCT USED FOR UNKNOWN INDICATION
     Dosage: 8 MG, UNK
     Route: 048
  3. ANTEBATE [Concomitant]
     Active Substance: BETAMETHASONE DIPROPIONATE
     Indication: PSORIASIS
     Dosage: 5 G, QD
     Route: 062
     Dates: start: 20160128
  4. DEPAKENE [Concomitant]
     Active Substance: VALPROIC ACID
     Indication: STRESS
  5. TASMOLIN [Concomitant]
     Active Substance: BIPERIDEN
     Indication: EPILEPSY
     Dosage: UNK
     Route: 048
  6. RISPERDAL [Concomitant]
     Active Substance: RISPERIDONE
     Indication: STRESS
  7. ZYPREXA [Concomitant]
     Active Substance: OLANZAPINE
     Indication: STRESS
  8. SELOKEN [Concomitant]
     Active Substance: METOPROLOL
     Indication: PRODUCT USED FOR UNKNOWN INDICATION
     Dosage: UNK
     Route: 048
  9. OXAROL [Suspect]
     Active Substance: MAXACALCITOL
     Dosage: 5 G, QD
     Route: 062
     Dates: start: 20160128
  10. MAGMITT [Concomitant]
     Active Substance: MAGNESIUM OXIDE
     Indication: PRODUCT USED FOR UNKNOWN INDICATION
     Dosage: UNK
     Route: 048
  11. FLUNITRAZEPAM [Concomitant]
     Active Substance: FLUNITRAZEPAM
     Indication: EPILEPSY
     Dosage: 2 MG, UNK
     Route: 048
  12. COSENTYX [Suspect]
     Active Substance: SECUKINUMAB
     Indication: PSORIASIS
     Dosage: 300 MG, QW
     Route: 058
     Dates: start: 20160128, end: 20160218
  13. OXAROL [Suspect]
     Active Substance: MAXACALCITOL
     Dosage: 1-2G
     Route: 062
  14. OXAROL [Suspect]
     Active Substance: MAXACALCITOL
     Indication: PSORIASIS
     Dosage: 2 G, UNK
     Route: 062
     Dates: start: 20151119
  15. DEPAKENE [Concomitant]
     Active Substance: VALPROIC ACID
     Indication: EPILEPSY
     Dosage: 800 MG, UNK
     Route: 048
  16. TASMOLIN [Concomitant]
     Active Substance: BIPERIDEN
     Indication: STRESS
     Dosage: UNK
     Route: 048
  17. FLUNITRAZEPAM [Concomitant]
     Active Substance: FLUNITRAZEPAM
     Indication: STRESS
  18. ANTEBATE [Concomitant]
     Active Substance: BETAMETHASONE DIPROPIONATE
     Dosage: 1-2G
     Route: 062
  19. RISPERDAL [Concomitant]
     Active Substance: RISPERIDONE
     Indication: EPILEPSY
     Dosage: 2 MG, UNK
     Route: 048

REACTIONS (1)
  - Platelet count decreased [Recovered/Resolved]

NARRATIVE: CASE EVENT DATE: 20160225
